FAERS Safety Report 9649542 (Version 1)
Quarter: 2013Q4

REPORT INFORMATION
  Report Type: Spontaneous
  Country: DE (occurrence: DE)
  Receive Date: 20131028
  Receipt Date: 20131028
  Transmission Date: 20140711
  Serious: Yes (Other)
  Sender: FDA-Public Use
  Company Number: DE-PFIZER INC-2013301162

PATIENT
  Age: 22 Year
  Sex: Female
  Weight: 60 kg

DRUGS (1)
  1. CLINDAMYCIN HCL [Suspect]
     Indication: TONSILLITIS
     Dosage: UNK
     Route: 048

REACTIONS (1)
  - Liver injury [Unknown]
